FAERS Safety Report 9726778 (Version 1)
Quarter: 2013Q4

REPORT INFORMATION
  Report Type: Spontaneous
  Country: US (occurrence: US)
  Receive Date: 20131203
  Receipt Date: 20131203
  Transmission Date: 20140711
  Serious: No
  Sender: FDA-Public Use
  Company Number: US-NOVEN-13US006077

PATIENT
  Age: 49 Year
  Sex: Male

DRUGS (3)
  1. FENTANYL [Suspect]
     Indication: SPINAL COLUMN STENOSIS
     Dosage: 100 MCG/HR Q 48 HRS
     Route: 062
     Dates: start: 2012
  2. HYDROCODONE [Concomitant]
     Indication: BREAKTHROUGH PAIN
     Dosage: 1 DAILY
     Route: 048
  3. HYDROCODONE [Concomitant]
     Dosage: 2 DAILY
     Route: 048

REACTIONS (10)
  - Muscle spasms [Not Recovered/Not Resolved]
  - Chills [Not Recovered/Not Resolved]
  - Anxiety [Not Recovered/Not Resolved]
  - Diarrhoea [Not Recovered/Not Resolved]
  - Hyperhidrosis [Not Recovered/Not Resolved]
  - Insomnia [Not Recovered/Not Resolved]
  - Drug withdrawal syndrome [Not Recovered/Not Resolved]
  - Inadequate analgesia [Not Recovered/Not Resolved]
  - Drug administration error [Not Recovered/Not Resolved]
  - Product quality issue [Not Recovered/Not Resolved]
